FAERS Safety Report 9751572 (Version 3)
Quarter: 2013Q4

REPORT INFORMATION
  Report Type: Report from Study
  Country: DE (occurrence: DE)
  Receive Date: 20131212
  Receipt Date: 20131227
  Transmission Date: 20140711
  Serious: Yes (Death)
  Sender: FDA-Public Use
  Company Number: DE-ABBVIE-13P-062-1125675-00

PATIENT
  Age: 81 Year
  Sex: Female
  Weight: 65 kg

DRUGS (7)
  1. HUMIRA [Suspect]
     Indication: RHEUMATOID ARTHRITIS
     Route: 058
     Dates: start: 20090216, end: 20130712
  2. METHOTREXATE [Concomitant]
     Indication: RHEUMATOID ARTHRITIS
  3. PREDNISOLONE [Concomitant]
     Indication: RHEUMATOID ARTHRITIS
  4. ENALAPRIL [Concomitant]
     Indication: HYPERTENSION
  5. NEBILET [Concomitant]
     Indication: CORONARY ARTERY DISEASE
  6. SIMVASTATIN [Concomitant]
     Indication: HYPERLIPIDAEMIA
  7. OSPUR D3 [Concomitant]
     Indication: OSTEOPOROSIS

REACTIONS (2)
  - Pulmonary mass [Fatal]
  - Metastases to liver [Fatal]
